FAERS Safety Report 7465472-7 (Version None)
Quarter: 2011Q2

REPORT INFORMATION
  Report Type: 
  Country: None (occurrence: None)
  Receive Date: 20110509
  Receipt Date: 20110427
  Transmission Date: 20111010
  Serious: Yes (Other)
  Sender: FDA-Public Use
  Company Number: US-ROCHE-749622

PATIENT
  Sex: Male
  Weight: 83.9 kg

DRUGS (5)
  1. AZMACORT [Concomitant]
     Dates: start: 19961101
  2. ACCUTANE [Suspect]
     Indication: ACNE
     Route: 065
     Dates: start: 19960801, end: 19970201
  3. SELDANE [Concomitant]
     Dates: start: 19961101
  4. FLONASE [Concomitant]
  5. MAXAIR [Concomitant]
     Dates: start: 19961101

REACTIONS (9)
  - DEPRESSION [None]
  - INFLAMMATORY BOWEL DISEASE [None]
  - ATTENTION DEFICIT/HYPERACTIVITY DISORDER [None]
  - SINUSITIS [None]
  - CROHN'S DISEASE [None]
  - DRUG HYPERSENSITIVITY [None]
  - ANXIETY [None]
  - GASTROINTESTINAL INJURY [None]
  - ASTHMA [None]
